FAERS Safety Report 25581645 (Version 1)
Quarter: 2025Q3

REPORT INFORMATION
  Report Type: Spontaneous
  Country: ET (occurrence: ET)
  Receive Date: 20250719
  Receipt Date: 20250719
  Transmission Date: 20251020
  Serious: Yes (Hospitalization, Other)
  Sender: RANBAXY
  Company Number: ET-SUN PHARMACEUTICAL INDUSTRIES LTD-2025R1-516315

PATIENT
  Age: 20 Year
  Sex: Female

DRUGS (4)
  1. ACETAMINOPHEN [Suspect]
     Active Substance: ACETAMINOPHEN
     Indication: Pain
     Dosage: 1 GRAM, QID
     Route: 048
  2. SODIUM CHLORIDE [Suspect]
     Active Substance: SODIUM CHLORIDE
     Indication: Dehydration
     Route: 042
  3. MEPERIDINE [Suspect]
     Active Substance: MEPERIDINE
     Indication: Pain
     Dosage: 25 MILLIGRAM, QID
     Route: 030
  4. INDOMETHACIN [Suspect]
     Active Substance: INDOMETHACIN
     Indication: Pain
     Route: 054

REACTIONS (3)
  - Maternal exposure during pregnancy [Unknown]
  - Disease progression [Unknown]
  - Drug ineffective [Unknown]
